FAERS Safety Report 6759099-X (Version None)
Quarter: 2010Q2

REPORT INFORMATION
  Report Type: 
  Country: None (occurrence: None)
  Receive Date: 20100607
  Receipt Date: 20100525
  Transmission Date: 20101027
  Serious: Yes (Other)
  Sender: FDA-Public Use
  Company Number: PHHY2010US34053

PATIENT
  Age: 49 Year
  Sex: Female

DRUGS (6)
  1. MYCOPHENOLATE MOFETIL [Suspect]
     Indication: RENAL TRANSPLANT
     Dosage: 720 MG DAILY
  2. SIROLIMUS [Suspect]
     Indication: RENAL TRANSPLANT
     Dosage: 5 MG DAILY
  3. SIROLIMUS [Suspect]
     Dosage: 6 MG DAILY
     Dates: start: 20060301
  4. STEROIDS NOS [Suspect]
     Indication: RENAL TRANSPLANT
  5. PREDNISONE [Concomitant]
     Dosage: 7.5 MG DAILY
  6. TACROLIMUS [Concomitant]
     Dosage: UNK
     Dates: start: 20070701

REACTIONS (5)
  - ALVEOLAR PROTEINOSIS [None]
  - COUGH [None]
  - DYSPNOEA [None]
  - INFLUENZA [None]
  - LUNG INFILTRATION [None]
